FAERS Safety Report 4317963-5 (Version None)
Quarter: 2004Q1

REPORT INFORMATION
  Report Type: 
  Country: None (occurrence: None)
  Receive Date: 20040316
  Receipt Date: 20040303
  Transmission Date: 20041129
  Serious: Yes (Other)
  Sender: FDA-Public Use
  Company Number: NL-GLAXOSMITHKLINE-B0325690A

PATIENT
  Age: 53 Year
  Sex: Female

DRUGS (3)
  1. ZYBAN [Suspect]
     Dosage: 150MG PER DAY
     Route: 048
     Dates: start: 20040121, end: 20040128
  2. SEREVENT [Concomitant]
  3. PULMICORT [Concomitant]
     Route: 055

REACTIONS (6)
  - ANGIONEUROTIC OEDEMA [None]
  - CHEILITIS [None]
  - EYE DISORDER [None]
  - PRURITUS [None]
  - SWELLING FACE [None]
  - URTICARIA [None]
